FAERS Safety Report 4382977-6 (Version None)
Quarter: 2004Q2

REPORT INFORMATION
  Report Type: 
  Country: None (occurrence: None)
  Receive Date: 20040603
  Receipt Date: 20040108
  Transmission Date: 20050107
  Serious: Yes (Hospitalization)
  Sender: FDA-Public Use
  Company Number: 200410143US

PATIENT
  Age: 64 Year
  Sex: Female
  Weight: 74 kg

DRUGS (10)
  1. LOVENOX [Suspect]
     Indication: HIP ARTHROPLASTY
     Dosage: 40 MG QD SC
     Route: 058
     Dates: start: 20030524, end: 20030528
  2. ACETAMINOPHEN [Concomitant]
  3. OXYCODONE HYDROCHLORIDE (PERCOCET) [Concomitant]
  4. CALCIUM CARBONATE [Concomitant]
  5. CEPHALEXIN [Concomitant]
  6. BISACODYL [Concomitant]
  7. FERROUS SULFATE TAB [Concomitant]
  8. HYDROXYZINE [Concomitant]
  9. MAGNESIUM HYDROXIDE TAB [Concomitant]
  10. ALUMINIUM HYDROXIDE GEL (MAALOX) [Concomitant]

REACTIONS (5)
  - DRUG SPECIFIC ANTIBODY PRESENT [None]
  - ERYTHEMA [None]
  - HEPARIN-INDUCED THROMBOCYTOPENIA [None]
  - INJECTION SITE NECROSIS [None]
  - INJECTION SITE PAIN [None]
